FAERS Safety Report 10570671 (Version 1)
Quarter: 2014Q4

REPORT INFORMATION
  Report Type: Spontaneous
  Country: US (occurrence: None)
  Receive Date: 20141106
  Receipt Date: 20141106
  Transmission Date: 20150529
  Serious: Yes (Other)
  Sender: FDA-Public Use
  Company Number: None

PATIENT
  Age: 74 Year
  Sex: Male
  Weight: 96 kg

DRUGS (1)
  1. ALTEPLASE [Suspect]
     Active Substance: ALTEPLASE
     Indication: CEREBROVASCULAR ACCIDENT
     Dosage: 8.7 MG BOLUUS/77MG OVER 1 HOUR ONCE INTRAVENOUS
     Route: 040

REACTIONS (1)
  - Angioedema [None]

NARRATIVE: CASE EVENT DATE: 20141021
